FAERS Safety Report 15735870 (Version 2)
Quarter: 2019Q1

REPORT INFORMATION
  Report Type: Spontaneous
  Country: US (occurrence: US)
  Receive Date: 20181218
  Receipt Date: 20190114
  Transmission Date: 20190417
  Serious: No
  Sender: FDA-Public Use
  Company Number: US-JNJFOC-20181203953

PATIENT
  Sex: Female

DRUGS (2)
  1. WOMENS ROGAINE [Suspect]
     Active Substance: MINOXIDIL
     Route: 061
  2. WOMENS ROGAINE [Suspect]
     Active Substance: MINOXIDIL
     Indication: ALOPECIA
     Dosage: USE A LOT OF AMOUNT (EACH DOSE IS UNKNOWN) BUT CONSUMER WENT THROUGH 8 MONTH SUPPLY IN 2 MONTHS
     Route: 061

REACTIONS (1)
  - Product use issue [Unknown]
